FAERS Safety Report 7388626-7 (Version None)
Quarter: 2011Q2

REPORT INFORMATION
  Report Type: 
  Country: None (occurrence: None)
  Receive Date: 20110401
  Receipt Date: 20110323
  Transmission Date: 20111010
  Serious: Yes (Hospitalization, Other)
  Sender: FDA-Public Use
  Company Number: FR-NOVOPROD-325675

PATIENT
  Age: 58 Year
  Sex: Female

DRUGS (9)
  1. ACTONEL [Concomitant]
     Dosage: 0.142 DF, QD OR 1 DF PER WEEK
     Route: 048
     Dates: end: 20100911
  2. FENOFIBRATE [Concomitant]
     Indication: DYSLIPIDAEMIA
     Dosage: 160 MG, QD
     Route: 048
     Dates: end: 20100911
  3. LEVOTHYROX [Concomitant]
     Dosage: 1 DF, QD
     Route: 048
  4. JANUMET [Suspect]
     Indication: PRODUCT USED FOR UNKNOWN INDICATION
     Dosage: 2 DF, QD
     Route: 048
     Dates: start: 20100906, end: 20100911
  5. COAPROVEL [Concomitant]
     Dosage: 1 UNK, QD
     Route: 048
     Dates: end: 20100911
  6. METFORMINE [Concomitant]
     Indication: TYPE 2 DIABETES MELLITUS
     Dosage: 2000 MG, QD
     Route: 048
     Dates: start: 20100824, end: 20100911
  7. LANTUS [Concomitant]
     Indication: TYPE 2 DIABETES MELLITUS
     Dosage: 40 IU, QD
     Route: 058
     Dates: start: 20100906
  8. VICTOZA [Suspect]
     Indication: TYPE 2 DIABETES MELLITUS
     Dosage: 6 MG/ML, QD
     Route: 058
     Dates: start: 20100824, end: 20100905
  9. LYRICA [Concomitant]
     Indication: DIABETIC NEUROPATHY
     Dosage: 1 DF, QD ( 50 MG, QD)
     Route: 048
     Dates: start: 20100501

REACTIONS (10)
  - BLOOD AMYLASE INCREASED [None]
  - DIARRHOEA [None]
  - FATIGUE [None]
  - PYREXIA [None]
  - RENAL FAILURE ACUTE [None]
  - NAUSEA [None]
  - VOMITING [None]
  - ABDOMINAL PAIN [None]
  - LIPASE INCREASED [None]
  - HYPERGLYCAEMIA [None]
